FAERS Safety Report 10330666 (Version 1)
Quarter: 2014Q3

REPORT INFORMATION
  Report Type: Spontaneous
  Country: CH (occurrence: CH)
  Receive Date: 20140722
  Receipt Date: 20140722
  Transmission Date: 20150326
  Serious: Yes (Hospitalization)
  Sender: FDA-Public Use
  Company Number: CH-ROCHE-1436686

PATIENT
  Age: 35 Year
  Sex: Female
  Weight: 56 kg

DRUGS (4)
  1. LODINE [Suspect]
     Active Substance: ETODOLAC
     Indication: NECK PAIN
     Route: 048
     Dates: start: 20140524, end: 20140529
  2. VALIUM [Suspect]
     Active Substance: DIAZEPAM
     Indication: PRODUCT USED FOR UNKNOWN INDICATION
     Route: 048
     Dates: start: 20140524, end: 20140529
  3. DAFALGAN [Suspect]
     Active Substance: ACETAMINOPHEN
     Indication: NECK PAIN
     Route: 048
     Dates: start: 20140524
  4. NOVALGIN [Suspect]
     Active Substance: METAMIZOLE SODIUM
     Indication: NECK PAIN
     Route: 048
     Dates: start: 20140524, end: 20140529

REACTIONS (2)
  - Agranulocytosis [Recovered/Resolved]
  - Neutropenia [Recovered/Resolved]

NARRATIVE: CASE EVENT DATE: 20140528
